FAERS Safety Report 14477847 (Version 1)
Quarter: 2018Q1

REPORT INFORMATION
  Report Type: Spontaneous
  Country: US (occurrence: US)
  Receive Date: 20180201
  Receipt Date: 20180201
  Transmission Date: 20180509
  Serious: No
  Sender: FDA-Public Use
  Company Number: US-GLAXOSMITHKLINE-US2018013293

PATIENT
  Age: 40 Year
  Sex: Female
  Weight: 114 kg

DRUGS (1)
  1. EQUATE NICOTINE [Suspect]
     Active Substance: NICOTINE
     Indication: PRODUCT USED FOR UNKNOWN INDICATION
     Dosage: 7 MG, QD
     Dates: start: 20180120, end: 20180123

REACTIONS (2)
  - Application site vesicles [Unknown]
  - Application site exfoliation [Unknown]

NARRATIVE: CASE EVENT DATE: 20180123
